FAERS Safety Report 4331953-8 (Version None)
Quarter: 2004Q2

REPORT INFORMATION
  Report Type: 
  Country: None (occurrence: None)
  Receive Date: 20040405
  Receipt Date: 20030630
  Transmission Date: 20050107
  Serious: No
  Sender: FDA-Public Use
  Company Number: US-GLAXOSMITHKLINE-A0414814A

PATIENT
  Sex: Female

DRUGS (5)
  1. SEREVENT [Suspect]
     Dosage: 2PUFF IN THE MORNING
     Route: 055
     Dates: start: 20030601
  2. PULMICORT [Concomitant]
     Route: 065
  3. ZOLOFT [Concomitant]
     Route: 065
  4. TOPAMAX [Concomitant]
     Route: 065
  5. DEXEDRINE [Concomitant]
     Route: 065

REACTIONS (1)
  - SENSATION OF FOREIGN BODY [None]
